FAERS Safety Report 19529799 (Version 1)
Quarter: 2021Q3

REPORT INFORMATION
  Report Type: Spontaneous
  Country: US (occurrence: US)
  Receive Date: 20210713
  Receipt Date: 20210713
  Transmission Date: 20211014
  Serious: Yes (Hospitalization, Other)
  Sender: FDA-Public Use
  Company Number: US-GLAXOSMITHKLINE-USCH2021GSK044994

PATIENT
  Age: 67 Year
  Sex: Male

DRUGS (1)
  1. IBUPROFEN. [Suspect]
     Active Substance: IBUPROFEN
     Indication: ARTHRALGIA
     Dosage: 400 MG THREE TO FOUR TIMES A DAY

REACTIONS (23)
  - Urine output decreased [Recovered/Resolved]
  - Nonalcoholic fatty liver disease [Unknown]
  - Kidney fibrosis [Recovered/Resolved]
  - Drug ineffective [Unknown]
  - Generalised oedema [Recovered/Resolved]
  - Renal atrophy [Recovered/Resolved]
  - Drug hypersensitivity [Recovered/Resolved]
  - Dyspnoea [Recovered/Resolved]
  - Oedema peripheral [Recovered/Resolved]
  - Condition aggravated [Recovered/Resolved]
  - Nausea [Recovered/Resolved]
  - Glomerulonephritis membranous [Recovered/Resolved]
  - Hepatic cirrhosis [Recovered/Resolved]
  - Glomerulonephropathy [Unknown]
  - Tubulointerstitial nephritis [Recovered/Resolved]
  - Orthopnoea [Recovered/Resolved]
  - Vomiting [Recovered/Resolved]
  - Albuminuria [Recovered/Resolved]
  - Renal tubular injury [Recovered/Resolved]
  - Proteinuria [Recovered/Resolved]
  - Abdominal distension [Recovered/Resolved]
  - Diarrhoea [Recovered/Resolved]
  - Urine abnormality [Recovered/Resolved]
